FAERS Safety Report 7507976-4 (Version None)
Quarter: 2011Q2

REPORT INFORMATION
  Report Type: 
  Country: None (occurrence: None)
  Receive Date: 20110527
  Receipt Date: 20110519
  Transmission Date: 20111010
  Serious: Yes (Hospitalization, Other)
  Sender: FDA-Public Use
  Company Number: GB-GENZYME-CAMP-1000285

PATIENT
  Sex: Female
  Weight: 86.6 kg

DRUGS (10)
  1. EURAX [Concomitant]
     Indication: URTICARIA
     Dosage: UNK
     Route: 061
     Dates: start: 20081107
  2. BECOTIDE [Concomitant]
     Indication: RESPIRATORY RATE INCREASED
     Dosage: 1-2 PUFFS
     Route: 055
  3. VENTOLIN [Concomitant]
     Indication: RESPIRATORY RATE INCREASED
     Dosage: 1-2 PUFFS
     Route: 055
  4. BETAMETHASONE VALERATE [Concomitant]
     Indication: ECZEMA
     Dosage: UNK
     Route: 061
  5. CHLORPHENIRAMINE MALEATE [Concomitant]
     Indication: URTICARIA
     Dosage: 4 MG, PRN
     Route: 048
     Dates: start: 20081103
  6. BECOTIDE [Concomitant]
     Indication: ASTHMA
  7. CODEINE SULFATE [Concomitant]
     Indication: BREAST LUMP REMOVAL
     Dosage: 30 MG, QID
     Route: 048
     Dates: start: 20090720, end: 20090720
  8. CAMPATH [Suspect]
     Indication: MULTIPLE SCLEROSIS
     Dosage: 24 MG, QDX5
     Route: 042
     Dates: start: 20081103, end: 20081107
  9. NICOTINE PATCH [Concomitant]
     Indication: NICOTINE DEPENDENCE
     Dosage: UNK
     Route: 023
     Dates: start: 20081110, end: 20090601
  10. VENTOLIN [Concomitant]
     Indication: ASTHMA

REACTIONS (1)
  - FIBROADENOMA OF BREAST [None]
